FAERS Safety Report 5765095-1 (Version None)
Quarter: 2008Q2

REPORT INFORMATION
  Report Type: 
  Country: None (occurrence: None)
  Receive Date: 20080611
  Receipt Date: 20080530
  Transmission Date: 20081010
  Serious: Yes (Other)
  Sender: FDA-Public Use
  Company Number: DE-JNJFOC-20080601912

PATIENT

DRUGS (3)
  1. DOXORUBICIN HCL [Suspect]
     Indication: MULTIPLE MYELOMA
     Dosage: 1ST DOSE
     Route: 065
  2. DEXAMETHASONE TAB [Suspect]
     Indication: MULTIPLE MYELOMA
     Dosage: 1ST DOSE
     Route: 065
  3. BISPHOSPHONATE [Concomitant]
     Route: 065

REACTIONS (1)
  - OSTEONECROSIS [None]
